FAERS Safety Report 8201931-7 (Version None)
Quarter: 2012Q1

REPORT INFORMATION
  Report Type: 
  Country: None (occurrence: None)
  Receive Date: 20120308
  Receipt Date: 20120224
  Transmission Date: 20120608
  Serious: Yes (Hospitalization)
  Sender: FDA-Public Use
  Company Number: VAL_00711_2012

PATIENT
  Age: 32 Year
  Sex: Female

DRUGS (13)
  1. MORPHINE [Concomitant]
  2. RANITDINE [Concomitant]
  3. OXYTOCIN [Concomitant]
  4. CEFOXITIN [Concomitant]
  5. DICLOFENAC SODIUM [Concomitant]
  6. CARBAMAZEPINE [Suspect]
     Indication: EPILEPSY
     Dosage: 1000 MG, 800 MG
  7. CARBAMAZEPINE [Suspect]
     Indication: PETIT MAL EPILEPSY
     Dosage: 1000 MG, 800 MG
  8. TINZAPARIN SODIUM [Concomitant]
  9. FENTANYL [Concomitant]
  10. ACETAMINOPHEN [Concomitant]
  11. HYDROXYETHYLSTRACH [Concomitant]
  12. LACTATED RINGER'S [Concomitant]
  13. ROPIVACAINE HYDROCHLORIDE [Concomitant]

REACTIONS (3)
  - MATERNAL EXPOSURE DURING PREGNANCY [None]
  - CAESAREAN SECTION [None]
  - HYPONATRAEMIA [None]
